FAERS Safety Report 23528933 (Version 1)
Quarter: 2024Q1

REPORT INFORMATION
  Report Type: Spontaneous
  Country: US (occurrence: US)
  Receive Date: 20240215
  Receipt Date: 20240215
  Transmission Date: 20240410
  Serious: Yes (Hospitalization, Other)
  Sender: FDA-Public Use
  Company Number: US-AUROBINDO-AUR-APL-2017-28239

PATIENT
  Age: 9 Year
  Sex: Male

DRUGS (3)
  1. CLINDAMYCIN [Suspect]
     Active Substance: CLINDAMYCIN
     Indication: Cellulitis
     Dosage: UNK
     Route: 065
  2. VANCOMYCIN [Concomitant]
     Active Substance: VANCOMYCIN
     Indication: Product used for unknown indication
     Dosage: UNK
     Route: 065
  3. DOXYCYCLINE [Concomitant]
     Active Substance: DOXYCYCLINE
     Indication: Product used for unknown indication
     Dosage: UNK
     Route: 065

REACTIONS (19)
  - Acute generalised exanthematous pustulosis [Recovered/Resolved]
  - Pyrexia [Recovered/Resolved]
  - Rash [Recovered/Resolved]
  - Anaemia [Recovered/Resolved]
  - Hypotension [Recovered/Resolved]
  - Hypoalbuminaemia [Recovered/Resolved]
  - Generalised oedema [Unknown]
  - Erythema [Unknown]
  - Myalgia [Unknown]
  - Nausea [Unknown]
  - Rash erythematous [Unknown]
  - Rash pustular [Unknown]
  - Leukocytosis [Unknown]
  - Nikolsky^s sign [Unknown]
  - Wheezing [Unknown]
  - Dyspnoea [Unknown]
  - Oedema [Recovered/Resolved]
  - Pustule [Recovered/Resolved]
  - Toxic shock syndrome [Recovered/Resolved]
